FAERS Safety Report 22067822 (Version 1)
Quarter: 2023Q1

REPORT INFORMATION
  Report Type: Spontaneous
  Country: US (occurrence: None)
  Receive Date: 20230307
  Receipt Date: 20230307
  Transmission Date: 20230417
  Serious: Yes (Hospitalization, Other)
  Sender: FDA-Public Use
  Company Number: US-Hikma Pharmaceuticals USA Inc.-US-H14001-23-00694

PATIENT
  Age: 57 Year
  Sex: Male

DRUGS (1)
  1. ROBAXIN [Suspect]
     Active Substance: METHOCARBAMOL
     Indication: Back pain
     Dosage: UNKNOWN
     Route: 065
     Dates: start: 20221111

REACTIONS (1)
  - Fatigue [Unknown]

NARRATIVE: CASE EVENT DATE: 20221117
